FAERS Safety Report 9838888 (Version 1)
Quarter: 2014Q1

REPORT INFORMATION
  Report Type: Spontaneous
  Country: FR (occurrence: None)
  Receive Date: 20140116
  Receipt Date: 20140116
  Transmission Date: 20141002
  Serious: Yes (Life-Threatening, Hospitalization)
  Sender: FDA-Public Use
  Company Number: SYM-2014-14743

PATIENT
  Age: 49 Year
  Sex: Female

DRUGS (8)
  1. FLAGYL [Suspect]
     Indication: PRODUCT USED FOR UNKNOWN INDICATION
     Dates: start: 20131109
  2. ORENCIA (ABATACEPT) (ABATACEPT) [Concomitant]
  3. ALDALIX (OSYROL-LASIX) (SPIRONOLACTONE) (FUROSEMIDE) [Concomitant]
  4. CARDENSIEL (BISOPROLOL FURMARATE) (BISOPROLOL FUMARATE) [Concomitant]
  5. LASILIX (FUROSEMIDE) (FUROSEMID) [Concomitant]
  6. DOLIPRANE (PARACETAMOL) (FUROSEMIDE) [Concomitant]
  7. IMOVANE (ZOPICLONE) (ZOPICLONE) [Concomitant]
  8. FORLAX (MACROGOL) (MACROGOL) [Concomitant]

REACTIONS (8)
  - Cardio-respiratory arrest [None]
  - Fall [None]
  - Grand mal convulsion [None]
  - Malaise [None]
  - Wernicke^s encephalopathy [None]
  - Loss of consciousness [None]
  - Syncope [None]
  - Wrist fracture [None]
